FAERS Safety Report 19767919 (Version 3)
Quarter: 2022Q1

REPORT INFORMATION
  Report Type: Spontaneous
  Country: US (occurrence: US)
  Receive Date: 20210831
  Receipt Date: 20220301
  Transmission Date: 20220423
  Serious: No
  Sender: FDA-Public Use
  Company Number: US-BAYER-2021-202777

PATIENT
  Age: 19 Year
  Sex: Female

DRUGS (2)
  1. MIRENA [Suspect]
     Active Substance: LEVONORGESTREL
     Indication: Contraception
     Dosage: 20?G/DAY
     Route: 015
     Dates: start: 20200131, end: 20210302
  2. MIRENA [Suspect]
     Active Substance: LEVONORGESTREL
     Indication: Menstrual cycle management

REACTIONS (13)
  - Weight increased [Recovering/Resolving]
  - Hypometabolism [Not Recovered/Not Resolved]
  - Pain [None]
  - Acne [None]
  - Rash [Not Recovered/Not Resolved]
  - Headache [None]
  - Migraine [None]
  - Musculoskeletal discomfort [None]
  - Blood pressure increased [Not Recovered/Not Resolved]
  - Breast enlargement [Not Recovered/Not Resolved]
  - Malaise [None]
  - Fatigue [None]
  - Heart rate increased [None]

NARRATIVE: CASE EVENT DATE: 20200401
